FAERS Safety Report 17453650 (Version 1)
Quarter: 2020Q1

REPORT INFORMATION
  Report Type: Spontaneous
  Country: US (occurrence: US)
  Receive Date: 20200224
  Receipt Date: 20200224
  Transmission Date: 20200409
  Serious: No
  Sender: FDA-Public Use
  Company Number: US-VYERA PHARMACEUTICALS, LLC-2019VYE00029

PATIENT
  Age: 40 Year
  Sex: Male
  Weight: 118.37 kg

DRUGS (5)
  1. LEUCOVORIN. [Concomitant]
     Active Substance: LEUCOVORIN
     Dosage: UNK
     Dates: start: 201907
  2. DARAPRIM [Suspect]
     Active Substance: PYRIMETHAMINE
     Indication: TOXOPLASMOSIS
     Dosage: WAS PRESCRIBED TO TAKE 8 TABLETS, ON DAY ONE.
     Route: 048
     Dates: start: 20190731
  3. SULFADIAZINE. [Concomitant]
     Active Substance: SULFADIAZINE
     Dosage: UNK
     Dates: start: 201907
  4. DARAPRIM [Suspect]
     Active Substance: PYRIMETHAMINE
     Dosage: TOOK 4 TABLETS, 1X/DAY ON DAY ONE AND DAY TWO.
     Dates: start: 20190801, end: 20190802
  5. DARAPRIM [Suspect]
     Active Substance: PYRIMETHAMINE
     Dosage: 2 TABLETS (50MG) 1X/DAY
     Dates: start: 20190803

REACTIONS (2)
  - Rash [Recovered/Resolved]
  - Pruritus [Recovering/Resolving]

NARRATIVE: CASE EVENT DATE: 20190801
